FAERS Safety Report 9553568 (Version 3)
Quarter: 2014Q2

REPORT INFORMATION
  Report Type: Report from Study
  Country: RU (occurrence: RU)
  Receive Date: 20130925
  Receipt Date: 20140606
  Transmission Date: 20141212
  Serious: Yes (Hospitalization)
  Sender: FDA-Public Use
  Company Number: RU-SANOFI-AVENTIS-2013SA093550

PATIENT
  Age: 76 Year
  Sex: Female

DRUGS (7)
  1. PLAVIX [Suspect]
     Indication: THROMBOSIS PROPHYLAXIS
     Route: 048
     Dates: start: 2011
  2. LOZAP [Suspect]
     Indication: HYPERTENSION
     Route: 048
  3. CAPTOPRIL [Concomitant]
     Indication: HYPERTENSION
     Route: 048
  4. KARDIKET [Concomitant]
     Indication: ANGINA PECTORIS
     Route: 048
  5. VERAPAMIL [Concomitant]
     Indication: ANGINA PECTORIS
     Route: 048
  6. DIURETICS [Concomitant]
     Indication: HYPERTENSION
     Route: 048
  7. ATORIS [Concomitant]
     Indication: HYPERLIPIDAEMIA
     Route: 048

REACTIONS (5)
  - Retinal degeneration [Not Recovered/Not Resolved]
  - Visual acuity reduced [Not Recovered/Not Resolved]
  - Blood cholesterol increased [Not Recovered/Not Resolved]
  - Blood pressure inadequately controlled [Not Recovered/Not Resolved]
  - Coronary artery stenosis [Not Recovered/Not Resolved]
